FAERS Safety Report 5505471-5 (Version None)
Quarter: 2007Q4

REPORT INFORMATION
  Report Type: 
  Country: None (occurrence: None)
  Receive Date: 20071102
  Receipt Date: 20071023
  Transmission Date: 20080405
  Serious: Yes (Other)
  Sender: FDA-Public Use
  Company Number: JP-JNJFOC-20071006130

PATIENT
  Age: 77 Year
  Sex: Male

DRUGS (2)
  1. FINIBAX [Suspect]
     Route: 041
  2. FINIBAX [Suspect]
     Indication: PNEUMONIA
     Route: 041

REACTIONS (1)
  - HYPERGLYCAEMIA [None]
